FAERS Safety Report 4674559-3 (Version None)
Quarter: 2005Q2

REPORT INFORMATION
  Report Type: 
  Country: None (occurrence: None)
  Receive Date: 20050526
  Receipt Date: 20050420
  Transmission Date: 20051028
  Serious: Yes (Hospitalization)
  Sender: FDA-Public Use
  Company Number: JP-MERCK-0504USA03993

PATIENT
  Age: 43 Year
  Sex: Female

DRUGS (11)
  1. CLAFORAN [Concomitant]
     Indication: PNEUMONIA
     Route: 042
     Dates: start: 20050407, end: 20050407
  2. PRIMAXIN [Suspect]
     Indication: PNEUMONIA
     Route: 042
     Dates: start: 20050408, end: 20050417
  3. KLARICID [Suspect]
     Indication: PNEUMONIA
     Route: 048
     Dates: start: 20050414, end: 20050417
  4. AMINOPHYLLINE [Concomitant]
     Indication: BRONCHOSTENOSIS
     Route: 042
     Dates: start: 20050407, end: 20050415
  5. ERYTHROMYCIN [Suspect]
     Indication: PNEUMONIA
     Route: 042
     Dates: start: 20050408, end: 20050413
  6. [THERAPY UNSPECIFIED] [Concomitant]
     Indication: PNEUMONIA
     Route: 042
     Dates: start: 20050407, end: 20050409
  7. NOVOLIN 30R [Concomitant]
     Indication: DIABETES MELLITUS MANAGEMENT
     Route: 058
     Dates: start: 20050407
  8. NOVOLIN 30R [Concomitant]
     Route: 058
     Dates: start: 20050407
  9. SOLU-MEDROL [Concomitant]
     Indication: PNEUMONIA
     Route: 042
     Dates: start: 20050407, end: 20050409
  10. OMEPRAL [Concomitant]
     Indication: PROPHYLAXIS AGAINST GASTROINTESTINAL ULCER
     Route: 042
     Dates: start: 20050407, end: 20050413
  11. LASIX [Concomitant]
     Indication: POLYURIA
     Route: 042
     Dates: start: 20050408, end: 20050413

REACTIONS (10)
  - DIABETIC NEPHROPATHY [None]
  - DRUG HYPERSENSITIVITY [None]
  - GENERALISED ERYTHEMA [None]
  - HYPERLIPIDAEMIA [None]
  - HYPERPROTEINAEMIA [None]
  - NEPHROTIC SYNDROME [None]
  - PRURITUS [None]
  - PURPURA [None]
  - PYREXIA [None]
  - RASH MACULO-PAPULAR [None]
